FAERS Safety Report 5960679-X (Version None)
Quarter: 2008Q4

REPORT INFORMATION
  Report Type: 
  Country: None (occurrence: None)
  Receive Date: 20081120
  Receipt Date: 20081112
  Transmission Date: 20090506
  Serious: Yes (Other)
  Sender: FDA-Public Use
  Company Number: JP-PFIZER INC-2008074200

PATIENT
  Sex: Female
  Weight: 40 kg

DRUGS (10)
  1. AZULFIDINE [Suspect]
     Indication: RHEUMATOID ARTHRITIS
     Route: 048
     Dates: start: 20080610, end: 20080625
  2. FERROMIA [Suspect]
     Indication: ANAEMIA
     Route: 048
     Dates: start: 20061130, end: 20080710
  3. RABEPRAZOLE SODIUM [Suspect]
     Indication: GASTRIC ULCER
     Route: 048
     Dates: start: 20061130, end: 20080710
  4. PLETAL [Suspect]
     Indication: ARTERIOSCLEROSIS OBLITERANS
     Route: 048
     Dates: start: 20061130, end: 20080710
  5. ETIZOLAM [Suspect]
     Indication: ANXIETY
     Route: 048
     Dates: start: 20061130, end: 20080710
  6. BERAPROST SODIUM [Suspect]
     Indication: ARTERIOSCLEROSIS OBLITERANS
     Route: 048
     Dates: start: 20061130, end: 20080710
  7. MECOBALAMIN [Suspect]
     Route: 048
     Dates: start: 20061130, end: 20080710
  8. HICEE [Concomitant]
     Route: 048
     Dates: start: 20061026
  9. ADOFEED [Concomitant]
     Dates: start: 20060902
  10. AZUNOL [Concomitant]
     Dates: start: 20080610

REACTIONS (2)
  - RASH [None]
  - VASCULITIS [None]
